FAERS Safety Report 19218353 (Version 1)
Quarter: 2021Q2

REPORT INFORMATION
  Report Type: Spontaneous
  Country: DE (occurrence: DE)
  Receive Date: 20210505
  Receipt Date: 20210505
  Transmission Date: 20210717
  Serious: Yes (Life-Threatening, Hospitalization, Other)
  Sender: FDA-Public Use
  Company Number: DE-ACCORD-224122

PATIENT
  Age: 13 Month
  Sex: Female
  Weight: 9 kg

DRUGS (5)
  1. TOPIRAMATE. [Suspect]
     Active Substance: TOPIRAMATE
     Indication: EPILEPTIC ENCEPHALOPATHY
     Route: 048
  2. LEVETIRACETAM. [Concomitant]
     Active Substance: LEVETIRACETAM
     Indication: EPILEPTIC ENCEPHALOPATHY
     Route: 048
  3. PERAMPANEL [Concomitant]
     Active Substance: PERAMPANEL
     Indication: EPILEPTIC ENCEPHALOPATHY
     Route: 048
  4. MELATONIN [Concomitant]
     Active Substance: MELATONIN
     Route: 048
  5. CLOBAZAM. [Suspect]
     Active Substance: CLOBAZAM
     Indication: EPILEPTIC ENCEPHALOPATHY
     Route: 048

REACTIONS (4)
  - Status epilepticus [Recovering/Resolving]
  - Somnolence [Recovering/Resolving]
  - Disturbance in attention [Recovering/Resolving]
  - Condition aggravated [Recovering/Resolving]

NARRATIVE: CASE EVENT DATE: 20191212
